FAERS Safety Report 21378596 (Version 3)
Quarter: 2022Q4

REPORT INFORMATION
  Report Type: Spontaneous
  Country: JP (occurrence: JP)
  Receive Date: 20220927
  Receipt Date: 20221211
  Transmission Date: 20230112
  Serious: Yes (Death)
  Sender: FDA-Public Use
  Company Number: JP-JNJFOC-20220945854

PATIENT
  Age: 84 Year
  Sex: Female

DRUGS (2)
  1. UPTRAVI [Suspect]
     Active Substance: SELEXIPAG
     Indication: Pulmonary hypertension
     Dosage: //2022
     Route: 048
     Dates: start: 20220114
  2. OPSUMIT [Concomitant]
     Active Substance: MACITENTAN
     Indication: Pulmonary hypertension
     Dosage: //2022

REACTIONS (3)
  - Malignant neoplasm progression [Fatal]
  - Ureteric cancer recurrent [Fatal]
  - Ureteric cancer metastatic [Fatal]

NARRATIVE: CASE EVENT DATE: 20220101
